FAERS Safety Report 9008568 (Version 3)
Quarter: 2013Q3

REPORT INFORMATION
  Report Type: Spontaneous
  Country: US (occurrence: US)
  Receive Date: 20130111
  Receipt Date: 20130731
  Transmission Date: 20140515
  Serious: No
  Sender: FDA-Public Use
  Company Number: US-PFIZER INC-2013013967

PATIENT
  Sex: Male
  Weight: 95 kg

DRUGS (2)
  1. ALAVERT [Suspect]
     Indication: SNEEZING
     Dosage: 10 MG, DAILY
     Dates: start: 20130110
  2. ALAVERT [Suspect]
     Indication: RHINORRHOEA

REACTIONS (1)
  - Drug ineffective [Unknown]
